FAERS Safety Report 24393931 (Version 1)
Quarter: 2024Q4

REPORT INFORMATION
  Report Type: Other
  Country: ES (occurrence: ES)
  Receive Date: 20241003
  Receipt Date: 20241003
  Transmission Date: 20250115
  Serious: Yes (Hospitalization, Other)
  Sender: BIONPHARMA
  Company Number: ES-Bion-013939

PATIENT
  Age: 51 Year
  Sex: Male

DRUGS (4)
  1. DEXAMETHASONE [Suspect]
     Active Substance: DEXAMETHASONE
     Indication: Waldenstrom^s macroglobulinaemia
     Dosage: FIRST LINE OF TREATMENT WITH 6 CYCLES, SECOND LINE STARTED FOR 6 CYCLES
  2. CYCLOPHOSPHAMIDE [Concomitant]
     Active Substance: CYCLOPHOSPHAMIDE
     Indication: Waldenstrom^s macroglobulinaemia
  3. RITUXIMAB [Concomitant]
     Active Substance: RITUXIMAB
     Indication: Waldenstrom^s macroglobulinaemia
     Dosage: FIRST LINE OF TREATMENT WITH 6 CYCLES, SECOND LINE STARTED FOR 6 CYCLES
  4. BORTEZOMIB [Concomitant]
     Active Substance: BORTEZOMIB
     Indication: Waldenstrom^s macroglobulinaemia

REACTIONS (4)
  - Herpes simplex reactivation [Recovering/Resolving]
  - Enteritis [Recovered/Resolved]
  - Malignant syphilis [Recovered/Resolved]
  - Drug ineffective [Not Recovered/Not Resolved]
